FAERS Safety Report 13725282 (Version 1)
Quarter: 2017Q3

REPORT INFORMATION
  Report Type: Report from Study
  Country: AU (occurrence: AU)
  Receive Date: 20170707
  Receipt Date: 20170707
  Transmission Date: 20171127
  Serious: Yes (Hospitalization)
  Sender: FDA-Public Use
  Company Number: AU-BAYER-2017-123769

PATIENT
  Age: 74 Year
  Sex: Female

DRUGS (3)
  1. LYRICA [Suspect]
     Active Substance: PREGABALIN
     Indication: NEURALGIA
     Dosage: UNK
  2. BETAFERON [Suspect]
     Active Substance: INTERFERON BETA-1B
     Indication: MULTIPLE SCLEROSIS
     Dosage: UNK, QOD
     Route: 058
     Dates: start: 19961201
  3. LYRICA [Suspect]
     Active Substance: PREGABALIN
     Indication: NEURALGIA
     Dosage: 75 MG, HS

REACTIONS (9)
  - Headache [None]
  - Injection site pain [Unknown]
  - Neuralgia [Unknown]
  - Skin ulcer [Recovering/Resolving]
  - Muscular weakness [Unknown]
  - Injection site reaction [Unknown]
  - Somnolence [None]
  - Cellulitis [Recovered/Resolved]
  - Dizziness [None]

NARRATIVE: CASE EVENT DATE: 201704
